FAERS Safety Report 14920278 (Version 1)
Quarter: 2018Q2

REPORT INFORMATION
  Report Type: Spontaneous
  Country: BR (occurrence: BR)
  Receive Date: 20180521
  Receipt Date: 20180521
  Transmission Date: 20180711
  Serious: Yes (Other)
  Sender: FDA-Public Use
  Company Number: PHHY2018BR001766

PATIENT
  Sex: Female
  Weight: 65 kg

DRUGS (5)
  1. RIVOTRIL [Suspect]
     Active Substance: CLONAZEPAM
     Indication: PRODUCT USED FOR UNKNOWN INDICATION
     Dosage: UNK
     Route: 065
  2. OLCADIL [Suspect]
     Active Substance: CLOXAZOLAM
     Indication: PANIC DISORDER
     Dosage: 1 MG, QD
     Route: 048
  3. OLCADIL [Suspect]
     Active Substance: CLOXAZOLAM
     Indication: DEPRESSION
     Dosage: 2 MG, QD
     Route: 048
  4. OLCADIL [Suspect]
     Active Substance: CLOXAZOLAM
     Dosage: 4 MG, QD
     Route: 048
  5. FLUOXETINE [Suspect]
     Active Substance: FLUOXETINE HYDROCHLORIDE
     Indication: PRODUCT USED FOR UNKNOWN INDICATION
     Dosage: UNK
     Route: 065

REACTIONS (7)
  - Nervousness [Not Recovered/Not Resolved]
  - Tremor [Unknown]
  - Depression [Unknown]
  - Drug ineffective [Unknown]
  - Crying [Unknown]
  - Panic disorder [Not Recovered/Not Resolved]
  - Drug dependence [Unknown]
